FAERS Safety Report 13834041 (Version 3)
Quarter: 2020Q1

REPORT INFORMATION
  Report Type: Spontaneous
  Country: US (occurrence: US)
  Receive Date: 20170804
  Receipt Date: 20200227
  Transmission Date: 20200409
  Serious: Yes (Hospitalization)
  Sender: FDA-Public Use
  Company Number: US-PFIZER INC-2017149569

PATIENT
  Age: 60 Year
  Sex: Male
  Weight: 86.18 kg

DRUGS (6)
  1. TACROLIMUS. [Concomitant]
     Active Substance: TACROLIMUS
     Indication: HEART TRANSPLANT
     Dosage: 1 MG, 2X/DAY
  2. RAPAMUNE [Suspect]
     Active Substance: SIROLIMUS
     Indication: HEART TRANSPLANT
     Dosage: 1 MG, 4X/DAY
     Route: 048
  3. PROGRAF [Concomitant]
     Active Substance: TACROLIMUS
     Dosage: UNK
  4. MYCOPHENOLIC ACID. [Concomitant]
     Active Substance: MYCOPHENOLIC ACID
     Indication: HEART TRANSPLANT
     Dosage: 180 MG, 2X/DAY
  5. CELLCEPT [Concomitant]
     Active Substance: MYCOPHENOLATE MOFETIL\MYCOPHENOLATE MOFETIL HYDROCHLORIDE
     Dosage: UNK
  6. RAPAMUNE [Suspect]
     Active Substance: SIROLIMUS
     Dosage: 2 MG, 2X/DAY
     Route: 048

REACTIONS (6)
  - Vomiting [Recovered/Resolved]
  - Off label use [Unknown]
  - Nausea [Recovering/Resolving]
  - Chest pain [Recovering/Resolving]
  - Product use in unapproved indication [Unknown]
  - Hypertension [Unknown]

NARRATIVE: CASE EVENT DATE: 20170707
